FAERS Safety Report 10883446 (Version 2)
Quarter: 2015Q2

REPORT INFORMATION
  Report Type: Spontaneous
  Country: FR (occurrence: FR)
  Receive Date: 20150303
  Receipt Date: 20150428
  Transmission Date: 20150821
  Serious: Yes (Hospitalization)
  Sender: FDA-Public Use
  Company Number: PHHY2015FR022345

PATIENT
  Age: 6 Month
  Sex: Female

DRUGS (1)
  1. AMITRIPTYLINE [Suspect]
     Active Substance: AMITRIPTYLINE
     Indication: PRODUCT USED FOR UNKNOWN INDICATION
     Route: 065

REACTIONS (10)
  - Hypertonia [Recovered/Resolved]
  - Hypotonia [Recovered/Resolved]
  - Dyskinesia [Recovered/Resolved]
  - Malaise [Recovered/Resolved]
  - Toxicity to various agents [Unknown]
  - Overdose [Unknown]
  - Weight decreased [Recovered/Resolved]
  - Poisoning [Unknown]
  - Flushing [Recovered/Resolved]
  - Pallor [Recovered/Resolved]
